FAERS Safety Report 10600451 (Version 1)
Quarter: 2014Q4

REPORT INFORMATION
  Report Type: Spontaneous
  Country: US (occurrence: US)
  Receive Date: 20141124
  Receipt Date: 20141124
  Transmission Date: 20150529
  Serious: Yes (Hospitalization)
  Sender: FDA-Public Use
  Company Number: US-CIPLA LTD.-2014US02081

PATIENT

DRUGS (7)
  1. SIMVASTATIN. [Concomitant]
     Active Substance: SIMVASTATIN
  2. METOPROLOL [Concomitant]
     Active Substance: METOPROLOL
  3. VALACYCLOVIR HYDROCHLORIDE. [Suspect]
     Active Substance: VALACYCLOVIR HYDROCHLORIDE
     Indication: OPHTHALMIC HERPES ZOSTER
     Dosage: 1000 MG, DAILY FOR 7 DAYS
     Route: 048
  4. SEVELAMER [Concomitant]
     Active Substance: SEVELAMER
  5. FUROSEMIDE. [Concomitant]
     Active Substance: FUROSEMIDE
  6. TRIFLURIDINE. [Suspect]
     Active Substance: TRIFLURIDINE
     Indication: OPHTHALMIC HERPES ZOSTER
  7. GLIMEPIRIDE. [Concomitant]
     Active Substance: GLIMEPIRIDE

REACTIONS (5)
  - Neurotoxicity [Unknown]
  - Cerebrovascular accident [Unknown]
  - Major depression [None]
  - Encephalitis [Unknown]
  - Azotaemia [Unknown]
